FAERS Safety Report 22197093 (Version 1)
Quarter: 2023Q2

REPORT INFORMATION
  Report Type: Report from Study
  Country: SE (occurrence: SE)
  Receive Date: 20230411
  Receipt Date: 20230411
  Transmission Date: 20230721
  Serious: Yes (Hospitalization)
  Sender: FDA-Public Use
  Company Number: SE-MYLANLABS-2016550883

PATIENT
  Age: 8 Year
  Sex: Female

DRUGS (11)
  1. LATANOPROST [Suspect]
     Active Substance: LATANOPROST
     Indication: Intraocular pressure decreased
     Dosage: 1 GTT DROPS, QD (1X/DAY)
     Route: 065
     Dates: start: 20150220, end: 20150327
  2. LATANOPROST [Suspect]
     Active Substance: LATANOPROST
     Dosage: UNK (START DATE: 18-MAY-2020)
     Route: 065
  3. LATANOPROST [Suspect]
     Active Substance: LATANOPROST
     Dosage: 1 DOSAGE FORM, QD (1 EYE DROPS RIGHT EYE) (25-MAY-2019)
     Route: 047
     Dates: end: 20190903
  4. BIMATOPROST\TIMOLOL [Suspect]
     Active Substance: BIMATOPROST\TIMOLOL
     Indication: Glaucoma
     Dosage: 1 GTT DROPS, QD (1X/DAY)
     Route: 047
     Dates: start: 20150327, end: 20160420
  5. BIMATOPROST\TIMOLOL [Suspect]
     Active Substance: BIMATOPROST\TIMOLOL
     Dosage: 1 GTT DROPS, QD (1X/DAY) (27-JUL-2016)
     Route: 065
     Dates: end: 20160729
  6. TRUSOPT [Concomitant]
     Active Substance: DORZOLAMIDE HYDROCHLORIDE
     Indication: Glaucoma
     Dosage: 1 GTT DROPS, BID (START DATE 29-JUL-2016)
     Route: 065
     Dates: end: 20171208
  7. BRINZOLAMIDE [Concomitant]
     Active Substance: BRINZOLAMIDE
     Dosage: UNK
     Route: 065
     Dates: start: 20150327, end: 20160420
  8. COSOPT [Concomitant]
     Active Substance: DORZOLAMIDE HYDROCHLORIDE\TIMOLOL MALEATE
     Indication: Intraocular pressure decreased
     Dosage: UNK (START DATE 16-SEP-2019)
     Route: 065
  9. COSOPT [Concomitant]
     Active Substance: DORZOLAMIDE HYDROCHLORIDE\TIMOLOL MALEATE
     Dosage: UNK (START DATE 08-DEC-2017)
     Route: 065
     Dates: end: 20190903
  10. TROPICAMIDE [Concomitant]
     Active Substance: TROPICAMIDE
     Indication: Miosis
     Dosage: UNK (START DATE: 02-DEC-2016)
     Route: 065
     Dates: end: 20190903
  11. LATANOPROST [Concomitant]
     Active Substance: LATANOPROST
     Dosage: UNK (15-MAY-2020)
     Route: 065

REACTIONS (3)
  - Device deposit issue [Recovered/Resolved]
  - Iris hyperpigmentation [Not Recovered/Not Resolved]
  - Intraocular pressure increased [Recovered/Resolved]

NARRATIVE: CASE EVENT DATE: 20160115
